FAERS Safety Report 9699112 (Version 1)
Quarter: 2013Q4

REPORT INFORMATION
  Report Type: Spontaneous
  Country: US (occurrence: US)
  Receive Date: 20131120
  Receipt Date: 20131120
  Transmission Date: 20140711
  Serious: Yes (Other)
  Sender: FDA-Public Use
  Company Number: CHPA2013US017190

PATIENT
  Age: 68 Year
  Sex: Female

DRUGS (1)
  1. GAS-X EXTSTR CHEW TABS PEPPERMINT CREME [Suspect]
     Indication: FLATULENCE
     Dosage: UNK DF, QD
     Route: 048

REACTIONS (2)
  - Colitis [Unknown]
  - Incorrect dose administered [Unknown]
